FAERS Safety Report 9121984 (Version 2)
Quarter: 2013Q1

REPORT INFORMATION
  Report Type: Spontaneous
  Country: US (occurrence: US)
  Receive Date: 20130227
  Receipt Date: 20130304
  Transmission Date: 20140127
  Serious: Yes (Other)
  Sender: FDA-Public Use
  Company Number: PHEH2013US004444

PATIENT
  Age: 81 Year
  Sex: Female

DRUGS (3)
  1. DIOVAN [Suspect]
     Dosage: 160 MG, UNK
  2. DIOVAN [Suspect]
     Dosage: UNK UKN, UNK
  3. LISINOPRIL [Suspect]

REACTIONS (4)
  - Diabetes mellitus [Unknown]
  - Rheumatoid arthritis [Unknown]
  - Tremor [Unknown]
  - Cough [Unknown]
